FAERS Safety Report 6069737-5 (Version None)
Quarter: 2009Q1

REPORT INFORMATION
  Report Type: 
  Country: None (occurrence: None)
  Receive Date: 20090209
  Receipt Date: 20090204
  Transmission Date: 20090719
  Serious: Yes (Hospitalization, Other)
  Sender: FDA-Public Use
  Company Number: US-AMGEN-US308747

PATIENT
  Sex: Male

DRUGS (5)
  1. PROCRIT [Suspect]
     Indication: ANAEMIA
     Route: 065
     Dates: start: 20070101
  2. ARANESP [Suspect]
     Indication: ANAEMIA
     Route: 065
     Dates: start: 20080911
  3. CELLCEPT [Concomitant]
     Route: 065
  4. INTERFERON [Concomitant]
     Route: 065
  5. RIBAVIRIN [Concomitant]
     Route: 065

REACTIONS (3)
  - ANAEMIA [None]
  - ANTI-ERYTHROPOIETIN ANTIBODY POSITIVE [None]
  - APLASIA PURE RED CELL [None]
